FAERS Safety Report 4310435-3 (Version None)
Quarter: 2004Q1

REPORT INFORMATION
  Report Type: 
  Country: None (occurrence: None)
  Receive Date: 20040301
  Receipt Date: 20031112
  Transmission Date: 20041129
  Serious: No
  Sender: FDA-Public Use
  Company Number: WAES 0311USA01441

PATIENT
  Age: 39 Year
  Sex: Female

DRUGS (3)
  1. ZETIA [Suspect]
     Dosage: 10 MG/DAILY/PO
     Route: 048
  2. LIPITOR [Concomitant]
  3. PEPCID [Concomitant]

REACTIONS (2)
  - CHEST DISCOMFORT [None]
  - THROAT IRRITATION [None]
